FAERS Safety Report 10176697 (Version 1)
Quarter: 2014Q2

REPORT INFORMATION
  Report Type: Spontaneous
  Country: CN (occurrence: CN)
  Receive Date: 20140516
  Receipt Date: 20140516
  Transmission Date: 20141212
  Serious: Yes (Other)
  Sender: FDA-Public Use
  Company Number: PHHY2014CN059490

PATIENT
  Age: 66 Year
  Sex: Male
  Weight: 64 kg

DRUGS (2)
  1. LOTENSIN [Suspect]
     Indication: HYPERTENSION
     Dosage: 10 MG, QD
     Route: 048
     Dates: start: 20131108, end: 20131115
  2. ANTIHYPERTENSIVE DRUGS [Concomitant]

REACTIONS (4)
  - Hypoglycaemia [Recovering/Resolving]
  - Dizziness [Unknown]
  - Asthenia [Unknown]
  - Palpitations [Unknown]
